FAERS Safety Report 23275118 (Version 1)
Quarter: 2023Q4

REPORT INFORMATION
  Report Type: Spontaneous
  Country: US (occurrence: US)
  Receive Date: 20231208
  Receipt Date: 20231208
  Transmission Date: 20240110
  Serious: Yes (Hospitalization, Other)
  Sender: FDA-Public Use
  Company Number: US-BRISTOL-MYERS SQUIBB COMPANY-2023-175147

PATIENT
  Age: 81 Year
  Sex: Male
  Weight: 76.2 kg

DRUGS (2)
  1. POMALYST [Suspect]
     Active Substance: POMALIDOMIDE
     Indication: Plasma cell myeloma
     Dosage: D 1-21 Q 28 DAYS
     Route: 048
     Dates: start: 20191101
  2. DEXAMETHASONE [Suspect]
     Active Substance: DEXAMETHASONE
     Indication: Product used for unknown indication

REACTIONS (3)
  - Pneumonia [Recovered/Resolved]
  - Haematemesis [Recovered/Resolved]
  - Oesophageal rupture [Unknown]

NARRATIVE: CASE EVENT DATE: 20231101
